FAERS Safety Report 11842574 (Version 1)
Quarter: 2015Q4

REPORT INFORMATION
  Report Type: Spontaneous
  Country: US (occurrence: US)
  Receive Date: 20151216
  Receipt Date: 20151216
  Transmission Date: 20160305
  Serious: Yes (Death, Hospitalization)
  Sender: FDA-Public Use
  Company Number: US-BAYER-2015-486304

PATIENT
  Age: 87 Year
  Sex: Female

DRUGS (10)
  1. TAMSULOSIN [Suspect]
     Active Substance: TAMSULOSIN
     Route: 048
  2. PAROXETINE [Suspect]
     Active Substance: PAROXETINE\PAROXETINE HYDROCHLORIDE
  3. PHILLIPS^ LIQUID GELS STOOL SOFTENER [Suspect]
     Active Substance: DOCUSATE SODIUM
     Route: 048
  4. OLANZAPINE. [Suspect]
     Active Substance: OLANZAPINE
     Route: 048
  5. VITAMIN D [Suspect]
     Active Substance: CHOLECALCIFEROL
     Route: 048
  6. MONTELUKAST [Suspect]
     Active Substance: MONTELUKAST SODIUM
     Route: 048
  7. OMEPRAZOLE. [Suspect]
     Active Substance: OMEPRAZOLE
     Route: 048
  8. AMLODIPINE [Suspect]
     Active Substance: AMLODIPINE BESYLATE
     Route: 048
  9. TRAZODONE [Suspect]
     Active Substance: TRAZODONE HYDROCHLORIDE
     Route: 048
  10. MELATONIN [Suspect]
     Active Substance: MELATONIN
     Route: 048

REACTIONS (1)
  - Toxicity to various agents [Fatal]
